FAERS Safety Report 5987358-7 (Version None)
Quarter: 2008Q4

REPORT INFORMATION
  Report Type: 
  Country: None (occurrence: None)
  Receive Date: 20081209
  Receipt Date: 20081201
  Transmission Date: 20090506
  Serious: Yes (Other)
  Sender: FDA-Public Use
  Company Number: PHHY2008CA30190

PATIENT
  Sex: Female

DRUGS (1)
  1. SANDOSTATIN LAR [Suspect]
     Indication: GASTRIC ANTRAL VASCULAR ECTASIA
     Dosage: 20 MG, QMO
     Route: 030
     Dates: start: 20081103

REACTIONS (8)
  - ABDOMINAL PAIN [None]
  - ASTHENIA [None]
  - COUGH [None]
  - EPISTAXIS [None]
  - FAECES DISCOLOURED [None]
  - HAEMOPTYSIS [None]
  - MALAISE [None]
  - VOMITING [None]
